FAERS Safety Report 7578545-5 (Version None)
Quarter: 2011Q2

REPORT INFORMATION
  Report Type: 
  Country: None (occurrence: None)
  Receive Date: 20110628
  Receipt Date: 20110617
  Transmission Date: 20111010
  Serious: Yes (Death, Life-Threatening, Hospitalization)
  Sender: FDA-Public Use
  Company Number: JP-AMGEN-JPNCT2011017267

PATIENT
  Age: 65 Year
  Sex: Male
  Weight: 47 kg

DRUGS (28)
  1. LEUCOVORIN CALCIUM [Concomitant]
     Indication: COLORECTAL CANCER
     Route: 041
     Dates: start: 20100715, end: 20110302
  2. LEUCOVORIN CALCIUM [Concomitant]
     Route: 041
     Dates: start: 20101104, end: 20110217
  3. LEUCOVORIN CALCIUM [Concomitant]
     Route: 041
     Dates: start: 20110303, end: 20110303
  4. MAGNESIUM SULFATE [Concomitant]
     Dosage: UNK
     Route: 042
  5. KYTRIL [Concomitant]
     Dosage: UNK
     Route: 042
  6. PROCHLORPERAZINE [Concomitant]
     Route: 048
  7. PANITUMUMAB [Suspect]
     Indication: COLORECTAL CANCER
     Dosage: 6 MG/KG, Q2WK
     Route: 041
     Dates: start: 20100715, end: 20110303
  8. FLUOROURACIL [Suspect]
     Route: 041
     Dates: start: 20110303, end: 20110303
  9. OXALIPLATIN [Concomitant]
     Route: 041
     Dates: start: 20101104, end: 20110217
  10. OXINORM [Concomitant]
     Route: 048
  11. LEUCOVORIN CALCIUM [Concomitant]
     Route: 041
     Dates: start: 20110303
  12. DECADRON [Concomitant]
     Dosage: UNK
     Route: 042
  13. CAMPTOSAR [Suspect]
     Indication: COLORECTAL CANCER
     Route: 041
     Dates: start: 20110303, end: 20110303
  14. OXALIPLATIN [Concomitant]
     Route: 041
     Dates: start: 20100715, end: 20101027
  15. FLUOROURACIL [Suspect]
     Route: 040
     Dates: start: 20101104, end: 20110217
  16. FLUOROURACIL [Suspect]
     Route: 040
     Dates: start: 20110303, end: 20110303
  17. OXALIPLATIN [Concomitant]
     Indication: COLORECTAL CANCER
     Route: 041
     Dates: start: 20100715, end: 20110302
  18. BESOFTEN [Concomitant]
     Dosage: UNK
     Route: 062
  19. MAGMITT [Concomitant]
     Route: 048
  20. RABEPRAZOLE SODIUM [Concomitant]
     Route: 048
  21. FLUOROURACIL [Suspect]
     Route: 041
     Dates: start: 20100715, end: 20101027
  22. LEUCOVORIN CALCIUM [Concomitant]
     Route: 041
     Dates: start: 20100715, end: 20101027
  23. ALINAMIN-F [Concomitant]
     Route: 048
  24. OXYCONTIN [Concomitant]
     Route: 048
  25. FENTANYL [Concomitant]
     Route: 062
  26. FLUOROURACIL [Suspect]
     Indication: COLORECTAL CANCER
     Route: 040
     Dates: start: 20100715, end: 20101027
  27. FLUOROURACIL [Suspect]
     Route: 041
     Dates: start: 20101104, end: 20110217
  28. CALCICOL [Concomitant]
     Dosage: UNK
     Route: 042

REACTIONS (5)
  - DIARRHOEA [None]
  - WHITE BLOOD CELL COUNT DECREASED [None]
  - COLORECTAL CANCER [None]
  - INTERSTITIAL LUNG DISEASE [None]
  - DERMATITIS [None]
